FAERS Safety Report 19104882 (Version 2)
Quarter: 2021Q2

REPORT INFORMATION
  Report Type: Report from Study
  Country: US (occurrence: US)
  Receive Date: 20210407
  Receipt Date: 20210506
  Transmission Date: 20210717
  Serious: No
  Sender: FDA-Public Use
  Company Number: NVSC2021US076536

PATIENT
  Sex: Female

DRUGS (2)
  1. TABRECTA [Suspect]
     Active Substance: CAPMATINIB
     Indication: LUNG NEOPLASM MALIGNANT
     Dosage: 200 MG, BID
     Route: 048
  2. TABRECTA [Suspect]
     Active Substance: CAPMATINIB
     Dosage: 200 MG, TID
     Route: 048

REACTIONS (4)
  - Weight decreased [Recovering/Resolving]
  - Increased appetite [Recovering/Resolving]
  - Constipation [Recovering/Resolving]
  - Peripheral swelling [Not Recovered/Not Resolved]
